FAERS Safety Report 24548081 (Version 1)
Quarter: 2024Q4

REPORT INFORMATION
  Report Type: Spontaneous
  Country: US (occurrence: US)
  Receive Date: 20241025
  Receipt Date: 20241025
  Transmission Date: 20250115
  Serious: Yes (Hospitalization)
  Sender: ALKEM
  Company Number: US-ALKEM LABORATORIES LIMITED-US-ALKEM-2023-12811

PATIENT
  Sex: Female
  Weight: 30 kg

DRUGS (16)
  1. CLOBAZAM [Interacting]
     Active Substance: CLOBAZAM
     Indication: Epilepsy
     Dosage: 5 MILLIGRAM, BID (0.3 MG/KG/DAY)
     Route: 048
  2. CLOBAZAM [Interacting]
     Active Substance: CLOBAZAM
     Dosage: 0.02,QD MILLIGRAM/KILOGRAM DIVIDED THREE TIMES A DAY
     Route: 048
  3. CLOBAZAM [Interacting]
     Active Substance: CLOBAZAM
     Dosage: 7.5 MILLIGRAM, BID (0.5 MG/KG/DAY)
     Route: 048
  4. CLOBAZAM [Interacting]
     Active Substance: CLOBAZAM
     Dosage: 10 MILLIGRAM, BID (0.7 MG/KG/DAY)
     Route: 065
  5. CLOBAZAM [Interacting]
     Active Substance: CLOBAZAM
     Dosage: 5 MILLIGRAM, BID (0.3 MG/KG/DAY)
     Route: 065
  6. BACLOFEN [Concomitant]
     Active Substance: BACLOFEN
     Indication: Quadriplegia
     Dosage: 1051 MICROGRAM, QD BY PUMP
     Route: 065
  7. CLONIDINE [Concomitant]
     Active Substance: CLONIDINE
     Indication: Product used for unknown indication
     Dosage: 0.2 MILLIGRAM, HS AT BEDTIME
     Route: 065
  8. GLYCOPYRROLATE [Concomitant]
     Active Substance: GLYCOPYRROLATE
     Indication: Product used for unknown indication
     Dosage: 1 MILLIGRAM, HS IN THE MORNING
     Route: 048
  9. GLYCOPYRROLATE [Concomitant]
     Active Substance: GLYCOPYRROLATE
     Dosage: 1.5 MILLIGRAM, HS IN THE NOON
     Route: 048
  10. GLYCOPYRROLATE [Concomitant]
     Active Substance: GLYCOPYRROLATE
     Dosage: 1 MILLIGRAM, HS AT BEDTIME
     Route: 048
  11. LEVETIRACETAM [Concomitant]
     Active Substance: LEVETIRACETAM
     Indication: Generalised tonic-clonic seizure
     Dosage: 1200 MILLIGRAM, BID (80 MG/KG/DAY)
     Route: 048
  12. LORAZEPAM [Concomitant]
     Active Substance: LORAZEPAM
     Indication: Generalised tonic-clonic seizure
     Dosage: 2 MILLIGRAM (0.07 MG/KG)
     Route: 048
  13. LORAZEPAM [Concomitant]
     Active Substance: LORAZEPAM
     Indication: Anxiety
     Dosage: 1 MILLIGRAM, HS (0.03 MG/KG/DOSE)
     Route: 065
  14. LORAZEPAM [Concomitant]
     Active Substance: LORAZEPAM
     Dosage: 2 MILLIGRAM, PRN (EVERY 4-6 HOURS AS NEEDED)
     Route: 065
  15. LORATADINE [Concomitant]
     Active Substance: LORATADINE
     Indication: Product used for unknown indication
     Dosage: 10 MG/DAY
     Route: 048
  16. MELATONIN [Concomitant]
     Active Substance: MELATONIN
     Indication: Product used for unknown indication
     Dosage: 3 MILLIGRAM, HS AT BEDTIME
     Route: 048

REACTIONS (1)
  - Hypersomnia [Recovered/Resolved]
